FAERS Safety Report 13113472 (Version 4)
Quarter: 2017Q2

REPORT INFORMATION
  Report Type: Spontaneous
  Country: NL (occurrence: NL)
  Receive Date: 20170113
  Receipt Date: 20170421
  Transmission Date: 20170830
  Serious: Yes (Hospitalization, Other)
  Sender: FDA-Public Use
  Company Number: NL-TEVA-729548ACC

PATIENT
  Age: 52 Year
  Sex: Female
  Weight: 83 kg

DRUGS (4)
  1. DEXAMETHASON [Concomitant]
     Active Substance: DEXAMETHASONE
     Route: 042
  2. RANITIDINE HYDROCHLORIDE. [Concomitant]
     Active Substance: RANITIDINE HYDROCHLORIDE
     Route: 042
  3. PACLITAXEL INFOPL CONC 6MG/ML [Suspect]
     Active Substance: PACLITAXEL
     Indication: BREAST CANCER
     Route: 042
     Dates: start: 20161215, end: 20161222
  4. TAVEGYL INJVLST 1MG/ML AMPUL 2ML [Concomitant]
     Route: 015

REACTIONS (7)
  - Loss of consciousness [Recovering/Resolving]
  - Cardiac arrest [Recovering/Resolving]
  - Dyspnoea [Recovering/Resolving]
  - Rash [Recovering/Resolving]
  - Chest discomfort [Recovering/Resolving]
  - Bradycardia [Recovering/Resolving]
  - Hypersensitivity [Recovering/Resolving]

NARRATIVE: CASE EVENT DATE: 20161222
